FAERS Safety Report 7982202-0 (Version None)
Quarter: 2011Q4

REPORT INFORMATION
  Report Type: 
  Country: None (occurrence: None)
  Receive Date: 20111213
  Receipt Date: 20111128
  Transmission Date: 20120403
  Serious: Yes (Other)
  Sender: FDA-Public Use
  Company Number: THQ2011A07077

PATIENT
  Age: 69 Year
  Sex: Female

DRUGS (2)
  1. ACTOS [Suspect]
     Indication: TYPE 2 DIABETES MELLITUS
     Dosage: 15 MG (1 D), PER ORAL
     Route: 048
     Dates: start: 20110101, end: 20110501
  2. GLUCOBAY [Concomitant]

REACTIONS (1)
  - BLADDER CANCER [None]
